FAERS Safety Report 14427177 (Version 1)
Quarter: 2018Q1

REPORT INFORMATION
  Report Type: Spontaneous
  Country: US (occurrence: US)
  Receive Date: 20180123
  Receipt Date: 20180123
  Transmission Date: 20180509
  Serious: No
  Sender: FDA-Public Use
  Company Number: US-IMPAX LABORATORIES, INC-2017-IPXL-03051

PATIENT
  Age: 55 Year
  Sex: Male
  Weight: 92 kg

DRUGS (8)
  1. NEUPRO [Suspect]
     Active Substance: ROTIGOTINE
     Indication: PARKINSON^S DISEASE
     Dosage: 1 MG, DAILY
     Route: 062
     Dates: start: 201511
  2. RYTARY [Suspect]
     Active Substance: CARBIDOPA\LEVODOPA
     Indication: PARKINSON^S DISEASE
     Dosage: 36.25/145 MG, 2 DF, 4 /DAY
     Route: 048
     Dates: start: 20170811
  3. NEUPRO [Suspect]
     Active Substance: ROTIGOTINE
     Dosage: 2 MG, UNK
     Route: 062
     Dates: start: 201703
  4. AZILECT [Concomitant]
     Active Substance: RASAGILINE MESYLATE
     Indication: PARKINSON^S DISEASE
     Dosage: 1 MG, DAILY
     Route: 048
     Dates: start: 2010
  5. RYTARY [Suspect]
     Active Substance: CARBIDOPA\LEVODOPA
     Dosage: 23.75/95 MG
     Route: 048
  6. NEUPRO [Suspect]
     Active Substance: ROTIGOTINE
     Dosage: 2 MG, DAILY
     Route: 062
     Dates: start: 2016
  7. RYTARY [Suspect]
     Active Substance: CARBIDOPA\LEVODOPA
     Dosage: 36.25/145MG, TWO CAPSULES QID
     Route: 048
  8. MIDODRINE HCL [Concomitant]
     Active Substance: MIDODRINE HYDROCHLORIDE
     Indication: HYPOTENSION
     Dosage: 10 MG, DAILY (1 IN MORNING AND ONE IN NOON)
     Route: 048
     Dates: start: 201704

REACTIONS (4)
  - Hallucination [Not Recovered/Not Resolved]
  - Weight decreased [Not Recovered/Not Resolved]
  - Feeling abnormal [Unknown]
  - Dyskinesia [Not Recovered/Not Resolved]

NARRATIVE: CASE EVENT DATE: 201702
